FAERS Safety Report 23064245 (Version 3)
Quarter: 2023Q4

REPORT INFORMATION
  Report Type: Spontaneous
  Country: IL (occurrence: IL)
  Receive Date: 20231013
  Receipt Date: 20231108
  Transmission Date: 20240110
  Serious: Yes (Disabling)
  Sender: FDA-Public Use
  Company Number: IL-BIOMARINAP-IL-2023-152733

PATIENT

DRUGS (3)
  1. VIMIZIM [Suspect]
     Active Substance: ELOSULFASE ALFA
     Indication: Mucopolysaccharidosis IV
     Dosage: 2 MILLIGRAM/KILOGRAM, QOW
     Route: 042
     Dates: start: 201709
  2. VIMIZIM [Suspect]
     Active Substance: ELOSULFASE ALFA
     Dosage: UNK
     Route: 042
     Dates: start: 2015
  3. VIMIZIM [Suspect]
     Active Substance: ELOSULFASE ALFA
     Dosage: UNK, QW
     Route: 042
     Dates: start: 20160505

REACTIONS (6)
  - Arthritis [Not Recovered/Not Resolved]
  - Arthralgia [Recovering/Resolving]
  - Arthropathy [Not Recovered/Not Resolved]
  - Hepatic enzyme abnormal [Not Recovered/Not Resolved]
  - Pain [Not Recovered/Not Resolved]
  - Inflammation [Unknown]

NARRATIVE: CASE EVENT DATE: 20200101
